FAERS Safety Report 5016694-6 (Version None)
Quarter: 2006Q2

REPORT INFORMATION
  Report Type: 
  Country: None (occurrence: None)
  Receive Date: 20060602
  Receipt Date: 20060526
  Transmission Date: 20061013
  Serious: Yes (Other)
  Sender: FDA-Public Use
  Company Number: FR-GILEAD-2006-0009650

PATIENT
  Sex: Female
  Weight: 51 kg

DRUGS (7)
  1. TRUVADA [Suspect]
     Indication: HIV INFECTION
     Route: 048
     Dates: start: 20060214, end: 20060411
  2. TELZIR [Concomitant]
     Indication: HIV INFECTION
     Route: 048
     Dates: start: 20050111
  3. RITONAVIR [Concomitant]
     Indication: HIV INFECTION
     Dates: start: 20050111
  4. TRIFLUCAN [Concomitant]
     Indication: PROPHYLAXIS
     Route: 048
     Dates: start: 20041215, end: 20060411
  5. PREVISCAN [Concomitant]
     Indication: PULMONARY EMBOLISM
     Route: 048
     Dates: start: 20060214
  6. WELVONE [Concomitant]
     Indication: PROPHYLAXIS
     Route: 048
     Dates: start: 20041215
  7. LEDERFOLIN [Concomitant]
     Indication: HOMOCYSTINAEMIA
     Route: 048
     Dates: start: 20041215

REACTIONS (2)
  - ECZEMA [None]
  - PRURITUS [None]
